FAERS Safety Report 13674793 (Version 1)
Quarter: 2017Q2

REPORT INFORMATION
  Report Type: Spontaneous
  Country: US (occurrence: US)
  Receive Date: 20170621
  Receipt Date: 20170621
  Transmission Date: 20170830
  Serious: No
  Sender: FDA-Public Use
  Company Number: US-PFIZER INC-2017267348

PATIENT
  Sex: Female

DRUGS (1)
  1. XELJANZ XR [Suspect]
     Active Substance: TOFACITINIB CITRATE
     Dosage: 11 MG, DAILY

REACTIONS (13)
  - Joint swelling [Unknown]
  - Grip strength decreased [Unknown]
  - Synovitis [Unknown]
  - Bone marrow oedema [Unknown]
  - Neck pain [Unknown]
  - Pain [Unknown]
  - Nodal osteoarthritis [Unknown]
  - Musculoskeletal stiffness [Unknown]
  - Eczema nummular [Unknown]
  - Arthralgia [Unknown]
  - Pain in extremity [Unknown]
  - Joint range of motion decreased [Unknown]
  - Tenosynovitis [Unknown]
